FAERS Safety Report 10090507 (Version 2)
Quarter: 2014Q2

REPORT INFORMATION
  Report Type: Spontaneous
  Country: IT (occurrence: IT)
  Receive Date: 20140421
  Receipt Date: 20140604
  Transmission Date: 20141212
  Serious: Yes (Other)
  Sender: FDA-Public Use
  Company Number: PHHY2014IT047558

PATIENT
  Age: 60 Year
  Sex: Female

DRUGS (6)
  1. CLOZAPINE [Suspect]
     Dosage: 1 MG, A DAY
     Route: 048
     Dates: start: 20140328, end: 20140328
  2. LORAZEPAM [Suspect]
     Dosage: 100 MG, A DAY
     Route: 048
     Dates: start: 20140328, end: 20140328
  3. RISPERDAL [Suspect]
     Dosage: 4 MG, A DAY
     Route: 048
     Dates: start: 20140328, end: 20140328
  4. ABILIFY [Suspect]
     Dosage: 10 MG, A DAY
     Route: 048
     Dates: start: 20140328, end: 20140328
  5. DEPAKIN CHRONO [Suspect]
     Dosage: 500 MG, A DAY
     Route: 048
     Dates: start: 20140328, end: 20140328
  6. AKINETON [Suspect]
     Dosage: 4 MG, A DAY
     Route: 048
     Dates: start: 20140328, end: 20140328

REACTIONS (1)
  - Sopor [Unknown]
